FAERS Safety Report 18533514 (Version 1)
Quarter: 2020Q4

REPORT INFORMATION
  Report Type: Spontaneous
  Country: US (occurrence: US)
  Receive Date: 20201123
  Receipt Date: 20201123
  Transmission Date: 20210114
  Serious: No
  Sender: FDA-Public Use
  Company Number: US-TEVA-2020-US-1851868

PATIENT
  Sex: Female

DRUGS (1)
  1. METOPROLOL SUCCINATE TEVA [Suspect]
     Active Substance: METOPROLOL SUCCINATE
     Route: 065

REACTIONS (4)
  - Headache [Unknown]
  - Hypertension [Unknown]
  - Palpitations [Unknown]
  - Fatigue [Recovering/Resolving]
